FAERS Safety Report 8011666-1 (Version None)
Quarter: 2011Q4

REPORT INFORMATION
  Report Type: 
  Country: None (occurrence: None)
  Receive Date: 20111228
  Receipt Date: 20110929
  Transmission Date: 20120403
  Serious: Yes (Other)
  Sender: FDA-Public Use
  Company Number: US-BAYER-201042043NA

PATIENT
  Age: 18 Year
  Sex: Female
  Weight: 52.154 kg

DRUGS (3)
  1. DOMPERIDONE [Concomitant]
     Dosage: 25 MG, BID
     Route: 048
  2. DROSPIRENONE AND ETHINYL ESTRADIOL [Suspect]
     Indication: CONTRACEPTION
     Dosage: UNK UNK, UNK
     Route: 048
     Dates: start: 20080601, end: 20091215
  3. YASMIN [Suspect]
     Indication: CONTRACEPTION
     Dosage: UNK UNK, UNK
     Route: 048
     Dates: start: 20031101, end: 20080601

REACTIONS (6)
  - ABDOMINAL PAIN [None]
  - PAIN [None]
  - VOMITING [None]
  - CHOLECYSTITIS CHRONIC [None]
  - NAUSEA [None]
  - WEIGHT DECREASED [None]
